FAERS Safety Report 13917161 (Version 2)
Quarter: 2017Q3

REPORT INFORMATION
  Report Type: Spontaneous
  Country: US (occurrence: US)
  Receive Date: 20170829
  Receipt Date: 20170830
  Transmission Date: 20171127
  Serious: Yes (Other)
  Sender: FDA-Public Use
  Company Number: US-PFIZER INC-2017368800

PATIENT
  Age: 61 Year
  Sex: Male
  Weight: 64.4 kg

DRUGS (14)
  1. LISINOPRIL HCTZ [Concomitant]
     Active Substance: HYDROCHLOROTHIAZIDE\LISINOPRIL
     Indication: BLOOD PRESSURE ABNORMAL
     Dosage: 1 DF, 1X/DAY
  2. LYRICA [Suspect]
     Active Substance: PREGABALIN
     Indication: PAIN
     Dosage: 100 MG, AS NEEDED (3TIMES A DAY)
     Route: 048
  3. DICLOFENAC [Concomitant]
     Active Substance: DICLOFENAC
     Indication: PAIN
     Dosage: 100 MG, 1X/DAY (50MG 2 TABLETS)
  4. DULOXETINE. [Concomitant]
     Active Substance: DULOXETINE
     Indication: PAIN
     Dosage: 60 MG, 2X/DAY (ONE)
  5. DULERA [Concomitant]
     Active Substance: FORMOTEROL FUMARATE DIHYDRATE\MOMETASONE FUROATE
     Dosage: 10 UG, UNK
  6. DULOXETINE. [Concomitant]
     Active Substance: DULOXETINE
     Indication: BIPOLAR DISORDER
  7. VENTOLIN HFA [Concomitant]
     Active Substance: ALBUTEROL SULFATE
     Indication: CHRONIC OBSTRUCTIVE PULMONARY DISEASE
     Dosage: 90 UG, AS NEEDED (INHALE 2 PUFFS EVERY 4 HOURS)
  8. LACTULOSE. [Concomitant]
     Active Substance: LACTULOSE
     Indication: LAXATIVE SUPPORTIVE CARE
     Dosage: UNK UNK, DAILY (10GM/15SOL LIQUID, ONE TABLESPOON DAILY )
  9. LYRICA [Suspect]
     Active Substance: PREGABALIN
     Dosage: 50 MG, 3X/DAY (IN THE MORNING, AT 4PM AND AT NIGHT)
     Route: 048
  10. OXYCODONE [Concomitant]
     Active Substance: OXYCODONE
     Indication: PAIN
     Dosage: UNK UNK, 3X/DAY (EVERY 8 HOURS)
  11. IPRATROPIUM [Concomitant]
     Active Substance: IPRATROPIUM
     Indication: CHRONIC OBSTRUCTIVE PULMONARY DISEASE
     Dosage: 3 ML, 4X/DAY (IN THE NEBULIZER)
  12. TAMSULIN [Concomitant]
     Indication: RENAL DISORDER
     Dosage: 0.4 MG, 1X/DAY
  13. PREDNISONE. [Concomitant]
     Active Substance: PREDNISONE
     Indication: DYSPNOEA
     Dosage: 5 MG, 1X/DAY (1 TABLET)
  14. MORPHINE [Concomitant]
     Active Substance: MORPHINE
     Indication: PAIN
     Dosage: 30 MG, 2X/DAY

REACTIONS (6)
  - Loss of consciousness [Unknown]
  - Seizure [Unknown]
  - Suicidal ideation [Unknown]
  - Autoimmune disorder [Unknown]
  - Spinal fracture [Unknown]
  - Hyponatraemia [Unknown]

NARRATIVE: CASE EVENT DATE: 201609
